FAERS Safety Report 12577074 (Version 2)
Quarter: 2016Q4

REPORT INFORMATION
  Report Type: Spontaneous
  Country: US (occurrence: US)
  Receive Date: 20160720
  Receipt Date: 20161019
  Transmission Date: 20170207
  Serious: No
  Sender: FDA-Public Use
  Company Number: US-OTSUKA-2016_016109

PATIENT
  Age: 59 Year
  Sex: Female

DRUGS (10)
  1. REXULTI [Suspect]
     Active Substance: BREXPIPRAZOLE
     Dosage: SPLITTING THE 1 MG TABLETS IN HALF (TAKING HALF A TABLET DAILY)
     Route: 065
     Dates: start: 2016, end: 201608
  2. CYMBALTA [Concomitant]
     Active Substance: DULOXETINE HYDROCHLORIDE
     Indication: PRODUCT USED FOR UNKNOWN INDICATION
     Dosage: 60 MG, QD (IN THE MORNING)
     Route: 065
  3. XANAX [Concomitant]
     Active Substance: ALPRAZOLAM
     Indication: PRODUCT USED FOR UNKNOWN INDICATION
     Dosage: 2 MG, (TWO IN THE AFTERNOON)
     Route: 065
  4. REXULTI [Suspect]
     Active Substance: BREXPIPRAZOLE
     Indication: MAJOR DEPRESSION
     Dosage: 1 MG, QD
     Route: 048
     Dates: start: 201605, end: 201605
  5. REXULTI [Suspect]
     Active Substance: BREXPIPRAZOLE
     Indication: ADJUVANT THERAPY
     Dosage: 0.5 MG, QD
     Route: 048
     Dates: start: 201605, end: 201605
  6. REXULTI [Suspect]
     Active Substance: BREXPIPRAZOLE
     Indication: ANXIETY
     Dosage: SPILLTING 0.5 MG TABLETS
     Route: 065
     Dates: start: 20160616, end: 2016
  7. REXULTI [Suspect]
     Active Substance: BREXPIPRAZOLE
     Dosage: 0.5 MG, QD
     Route: 048
     Dates: start: 2016, end: 2016
  8. TRAZODONE [Concomitant]
     Active Substance: TRAZODONE HYDROCHLORIDE
     Indication: PRODUCT USED FOR UNKNOWN INDICATION
     Dosage: UNK
     Route: 065
  9. REXULTI [Suspect]
     Active Substance: BREXPIPRAZOLE
     Dosage: 1 MG, QD (FOR 2-3 DAYS)
     Route: 065
     Dates: start: 2016, end: 2016
  10. CORTISONE [Concomitant]
     Active Substance: CORTISONE\HYDROCORTISONE
     Indication: ARTHROPATHY
     Dosage: UNK
     Route: 065

REACTIONS (15)
  - Malaise [Unknown]
  - Movement disorder [Recovering/Resolving]
  - Panic disorder [Not Recovered/Not Resolved]
  - Headache [Recovering/Resolving]
  - Psychomotor hyperactivity [Recovering/Resolving]
  - Abdominal discomfort [Unknown]
  - Tremor [Unknown]
  - Fatigue [Recovering/Resolving]
  - Confusional state [Unknown]
  - Logorrhoea [Unknown]
  - Drug prescribing error [Unknown]
  - Wrong technique in product usage process [Unknown]
  - Influenza [Recovering/Resolving]
  - Nausea [Recovering/Resolving]
  - Off label use [Unknown]

NARRATIVE: CASE EVENT DATE: 2016
